FAERS Safety Report 6875449-8 (Version None)
Quarter: 2010Q3

REPORT INFORMATION
  Report Type: 
  Country: None (occurrence: None)
  Receive Date: 20100727
  Receipt Date: 20100715
  Transmission Date: 20110219
  Serious: Yes (Other)
  Sender: FDA-Public Use
  Company Number: CA-JNJFOC-20100705646

PATIENT
  Sex: Male
  Weight: 103 kg

DRUGS (7)
  1. REMICADE [Suspect]
     Indication: PSORIATIC ARTHROPATHY
     Dosage: 28 DOSES TO DATE
     Route: 042
  2. METHOTREXATE [Concomitant]
     Route: 048
  3. VOLTAREN [Concomitant]
     Route: 048
  4. MODULON [Concomitant]
     Route: 048
  5. FOLIC ACID [Concomitant]
     Dosage: 6 DAYS A WEEK
  6. PRILOSEC [Concomitant]
     Route: 048
  7. RAMIPRIL [Concomitant]
     Dosage: 2 CAPS TWICE A DAY

REACTIONS (2)
  - CHEST PAIN [None]
  - DYSPNOEA [None]
